FAERS Safety Report 6494939-3 (Version None)
Quarter: 2009Q4

REPORT INFORMATION
  Report Type: 
  Country: None (occurrence: None)
  Receive Date: 20091214
  Receipt Date: 20090429
  Transmission Date: 20100525
  Serious: No
  Sender: FDA-Public Use
  Company Number: US-BRISTOL-MYERS SQUIBB COMPANY-14583942

PATIENT
  Age: 65 Year
  Sex: Male

DRUGS (6)
  1. ABILIFY [Suspect]
     Indication: BIPOLAR DISORDER
     Dosage: TOOK IN THE MORNING AND ALSO AT NIGHT. LATER THE DOSE WAS SWITCHED TO BEDTIME.
     Dates: start: 20090407
  2. LISINOPRIL [Suspect]
  3. WELLBUTRIN SR [Suspect]
  4. LEXAPRO [Suspect]
  5. XANAX [Suspect]
     Indication: ANXIETY
     Dosage: AS NEEDED
  6. ANTIDEPRESSANT [Concomitant]

REACTIONS (4)
  - ASTHENIA [None]
  - FEELING ABNORMAL [None]
  - LETHARGY [None]
  - SOMNOLENCE [None]
